FAERS Safety Report 21801446 (Version 5)
Quarter: 2024Q1

REPORT INFORMATION
  Report Type: Spontaneous
  Country: US (occurrence: US)
  Receive Date: 20221230
  Receipt Date: 20240321
  Transmission Date: 20240410
  Serious: No
  Sender: FDA-Public Use
  Company Number: US-BRISTOL-MYERS SQUIBB COMPANY-2022-160818

PATIENT
  Age: 63 Year
  Sex: Female

DRUGS (2)
  1. REVLIMID [Suspect]
     Active Substance: LENALIDOMIDE
     Indication: Plasma cell myeloma
     Route: 048
     Dates: start: 20200228
  2. REVLIMID [Suspect]
     Active Substance: LENALIDOMIDE
     Route: 048
     Dates: start: 20231011

REACTIONS (8)
  - Nasopharyngitis [Unknown]
  - Diarrhoea [Unknown]
  - Infection [Unknown]
  - COVID-19 [Unknown]
  - Weight increased [Unknown]
  - Abdominal distension [Unknown]
  - White blood cell count decreased [Unknown]
  - Arthralgia [Unknown]
